FAERS Safety Report 5345582-0 (Version None)
Quarter: 2007Q2

REPORT INFORMATION
  Report Type: 
  Country: None (occurrence: None)
  Receive Date: 20070605
  Receipt Date: 20070108
  Transmission Date: 20071010
  Serious: No
  Sender: FDA-Public Use
  Company Number: US-ASTRAZENECA-2007UW00487

PATIENT
  Age: 77 Year
  Sex: Female
  Weight: 63.5 kg

DRUGS (3)
  1. PRILOSEC [Suspect]
     Route: 048
  2. CRESTOR [Concomitant]
     Route: 048
  3. DICLOFENAC [Concomitant]

REACTIONS (2)
  - DYSGEUSIA [None]
  - TONGUE BLACK HAIRY [None]
